FAERS Safety Report 8720965 (Version 2)
Quarter: 2012Q4

REPORT INFORMATION
  Report Type: 
  Country: US (occurrence: US)
  Receive Date: 20120813
  Receipt Date: 20121001
  Transmission Date: 20130627
  Serious: Yes (Hospitalization)
  Sender: FDA-Public Use
  Company Number: US-ASTRAZENECA-2012SE55104

PATIENT
  Age: 62 Year
  Sex: Female
  Weight: 31.3 kg

DRUGS (8)
  1. PULMICORT RESPULES [Suspect]
     Indication: ASTHMA
     Route: 055
     Dates: start: 201102
  2. PULMICORT RESPULES [Suspect]
     Indication: CHRONIC OBSTRUCTIVE PULMONARY DISEASE
     Route: 055
     Dates: start: 201102
  3. BROVANA [Concomitant]
     Indication: ASTHMA
     Route: 055
     Dates: start: 201102
  4. BROVANA [Concomitant]
     Indication: CHRONIC OBSTRUCTIVE PULMONARY DISEASE
     Route: 055
     Dates: start: 201102
  5. XOPENEX [Concomitant]
     Indication: ASTHMA
     Dosage: PRN
     Route: 055
  6. DILTIAZEM HCL ER [Concomitant]
     Indication: HYPERTENSION
     Route: 048
     Dates: start: 200903
  7. LORAZEPAM [Concomitant]
     Indication: ANXIETY
     Route: 048
     Dates: start: 200903
  8. MUCINEX OTC [Concomitant]
     Indication: INCREASED VISCOSITY OF BRONCHIAL SECRETION
     Route: 048
     Dates: start: 2010

REACTIONS (4)
  - Upper respiratory tract infection [Unknown]
  - Asthma [Recovered/Resolved]
  - Weight decreased [Recovering/Resolving]
  - Off label use [Unknown]
